FAERS Safety Report 25493385 (Version 1)
Quarter: 2025Q2

REPORT INFORMATION
  Report Type: Spontaneous
  Country: MX (occurrence: MX)
  Receive Date: 20250630
  Receipt Date: 20250630
  Transmission Date: 20250717
  Serious: Yes (Other)
  Sender: SANDOZ
  Company Number: MX-002147023-NVSC2025MX001680

PATIENT
  Sex: Female
  Weight: 75 kg

DRUGS (6)
  1. KISQALI [Suspect]
     Active Substance: RIBOCICLIB SUCCINATE
     Indication: Breast cancer
     Dosage: 3 DOSAGE FORM, QD
     Route: 048
     Dates: start: 202308
  2. KISQALI [Suspect]
     Active Substance: RIBOCICLIB SUCCINATE
     Dosage: 1 DF, Q12H (OF 200 MG), Q12H
     Route: 048
     Dates: start: 202401
  3. KISQALI [Suspect]
     Active Substance: RIBOCICLIB SUCCINATE
     Dosage: 1 DOSAGE FORM, QD (200 MG)
     Route: 048
     Dates: start: 202308, end: 202412
  4. KISQALI [Suspect]
     Active Substance: RIBOCICLIB SUCCINATE
     Dosage: 2 DOSAGE FORM, QD (200 MG)
     Route: 048
     Dates: start: 202412
  5. LETROZOLE [Suspect]
     Active Substance: LETROZOLE
     Indication: Breast cancer
     Dosage: 1 DOSAGE FORM, QD (1 OF 2.5 MG)
     Route: 048
     Dates: start: 201808, end: 2023
  6. ZOLEDRONIC ACID [Suspect]
     Active Substance: ZOLEDRONIC ACID
     Indication: Bone disorder
     Dosage: 1 DOSAGE FORM, Q3MO (4 MG / 100 ML)
     Route: 042
     Dates: start: 2023

REACTIONS (13)
  - Hip fracture [Unknown]
  - Gait inability [Unknown]
  - Tremor [Recovering/Resolving]
  - Pruritus [Not Recovered/Not Resolved]
  - Bone disorder [Unknown]
  - Dysstasia [Unknown]
  - Gait disturbance [Unknown]
  - Urticaria [Not Recovered/Not Resolved]
  - Fatigue [Recovering/Resolving]
  - Erythema [Not Recovered/Not Resolved]
  - Constipation [Unknown]
  - Arthralgia [Unknown]
  - Off label use [Unknown]

NARRATIVE: CASE EVENT DATE: 20230101
